FAERS Safety Report 9520266 (Version 1)
Quarter: 2013Q3

REPORT INFORMATION
  Report Type: Spontaneous
  Country: GB (occurrence: GB)
  Receive Date: 20130912
  Receipt Date: 20130912
  Transmission Date: 20140515
  Serious: Yes (Other)
  Sender: FDA-Public Use
  Company Number: GB-ACTAVIS-2013-16360

PATIENT
  Age: 37 Year
  Sex: Male

DRUGS (3)
  1. OXALIPLATIN (UNKNOWN) [Suspect]
     Indication: COLORECTAL CANCER METASTATIC
     Dosage: 260 MG, WEEKLY FOR 88 WEEKS
     Route: 042
     Dates: start: 20100524, end: 201207
  2. XELODA [Suspect]
     Indication: COLORECTAL CANCER METASTATIC
     Dosage: 600 MG, WEEKLY FOR 88 WEEKS
     Route: 042
     Dates: start: 20100524, end: 201207
  3. AVASTIN [Concomitant]
     Indication: COLORECTAL CANCER METASTATIC
     Dosage: UNK
     Route: 048
     Dates: start: 20100524, end: 201007

REACTIONS (4)
  - Hypersensitivity [Unknown]
  - Thrombophlebitis [Unknown]
  - Pain [Unknown]
  - Peripheral sensory neuropathy [Unknown]
